FAERS Safety Report 24587185 (Version 1)
Quarter: 2024Q4

REPORT INFORMATION
  Report Type: Spontaneous
  Country: NL (occurrence: NL)
  Receive Date: 20241107
  Receipt Date: 20241107
  Transmission Date: 20250115
  Serious: Yes (Hospitalization, Other)
  Sender: AUROBINDO
  Company Number: NL-LRB-01010387

PATIENT
  Age: 49 Year
  Sex: Female
  Weight: 85.5 kg

DRUGS (2)
  1. OMEPRAZOLE [Suspect]
     Active Substance: OMEPRAZOLE
     Indication: Dyspepsia
     Dosage: 40 MILLIGRAM, ONCE A DAY
     Route: 065
     Dates: start: 20210630, end: 20241021
  2. METOPROLOL [Concomitant]
     Active Substance: METOPROLOL
     Indication: Product used for unknown indication
     Dosage: 50 MILLIGRAM
     Route: 065

REACTIONS (5)
  - Paraesthesia [Recovering/Resolving]
  - Muscle spasms [Recovering/Resolving]
  - Hypomagnesaemia [Recovering/Resolving]
  - Hypokalaemia [Recovering/Resolving]
  - Hypocalcaemia [Recovering/Resolving]
